FAERS Safety Report 18794872 (Version 1)
Quarter: 2021Q1

REPORT INFORMATION
  Report Type: Spontaneous
  Country: US (occurrence: US)
  Receive Date: 20210126
  Receipt Date: 20210126
  Transmission Date: 20210419
  Serious: Yes (Life-Threatening, Hospitalization)
  Sender: FDA-Public Use
  Company Number: None

PATIENT
  Age: 71 Year
  Sex: Female
  Weight: 49.9 kg

DRUGS (19)
  1. LOSARTAN POT [Concomitant]
     Active Substance: LOSARTAN POTASSIUM
  2. CARVEDILOL. [Concomitant]
     Active Substance: CARVEDILOL
  3. SPEARMINT TEA [Concomitant]
  4. VITAMIN C [Concomitant]
     Active Substance: ASCORBIC ACID
  5. LOOP MONITOR [Concomitant]
  6. HYDRALAZINE [Concomitant]
     Active Substance: HYDRALAZINE HYDROCHLORIDE
  7. TEA [Concomitant]
     Active Substance: TEA LEAF
  8. BITTER MELON ECHINACEA TEA [Concomitant]
  9. SPIRONOLACTONE. [Concomitant]
     Active Substance: SPIRONOLACTONE
  10. IRON SUPPLEMENT [Concomitant]
     Active Substance: IRON
  11. BERBERINE [Concomitant]
     Active Substance: BERBERINE
  12. MULTIVITAMINS [Concomitant]
     Active Substance: VITAMINS
  13. LIOTHYRONINE [Concomitant]
     Active Substance: LIOTHYRONINE
  14. VIT D [Concomitant]
     Active Substance: VITAMIN D NOS
  15. ZINC. [Concomitant]
     Active Substance: ZINC
  16. LASIK [Concomitant]
     Active Substance: FUROSEMIDE\POTASSIUM CHLORIDE
  17. LEVOTHYROXINE. [Concomitant]
     Active Substance: LEVOTHYROXINE
  18. LOSARTAN POT/HYDROCHLOROTHIAZIDE TAB 100?25MG [Suspect]
     Active Substance: HYDROCHLOROTHIAZIDE\LOSARTAN POTASSIUM
     Indication: HYPERTENSION
     Dosage: ?          QUANTITY:100 MG MILLIGRAM(S);?
     Route: 048
     Dates: end: 20200717
  19. CLONIDINE. [Concomitant]
     Active Substance: CLONIDINE

REACTIONS (1)
  - Hyponatraemia [None]

NARRATIVE: CASE EVENT DATE: 20200717
